FAERS Safety Report 11125895 (Version 1)
Quarter: 2015Q2

REPORT INFORMATION
  Report Type: Report from Study
  Country: DE (occurrence: DE)
  Receive Date: 20150520
  Receipt Date: 20150520
  Transmission Date: 20150821
  Serious: Yes (Death, Hospitalization, Other)
  Sender: FDA-Public Use
  Company Number: DE-CELGENE-DEU-2015053478

PATIENT
  Age: 61 Year
  Sex: Female

DRUGS (2)
  1. POMALIDOMIDE [Suspect]
     Active Substance: POMALIDOMIDE
     Indication: PRODUCT USED FOR UNKNOWN INDICATION
     Route: 065
  2. THALIDOMIDE CELGENE [Suspect]
     Active Substance: THALIDOMIDE
     Indication: PLASMA CELL MYELOMA
     Route: 048
     Dates: start: 20121022, end: 20121107

REACTIONS (3)
  - Plasma cell myeloma recurrent [Fatal]
  - Haemoglobin decreased [Recovered/Resolved]
  - Osteolysis [Not Recovered/Not Resolved]

NARRATIVE: CASE EVENT DATE: 20130614
